FAERS Safety Report 4439803-6 (Version None)
Quarter: 2004Q3

REPORT INFORMATION
  Report Type: 
  Country: None (occurrence: None)
  Receive Date: 20040831
  Receipt Date: 20040820
  Transmission Date: 20050211
  Serious: Yes (Death, Hospitalization)
  Sender: FDA-Public Use
  Company Number: HQWYE501216APR04

PATIENT
  Age: 85 Year
  Sex: Female
  Weight: 70.1 kg

DRUGS (8)
  1. MYLOTARG (GEMTUMAB OZOGAMICIN, INJECTION) [Suspect]
     Indication: ACUTE MYELOID LEUKAEMIA
     Dosage: 15.5 MG OVER 2 HOURS, INTRAVENOUS
     Route: 042
     Dates: start: 20040326, end: 20040326
  2. VANCOMYCIN [Concomitant]
  3. LEVAQUIN [Concomitant]
  4. DIFLUCAN [Concomitant]
  5. VALTREX [Concomitant]
  6. AMBIEN [Concomitant]
  7. TAMOXIFEN CITRATE [Concomitant]
  8. SENOKOT [Concomitant]

REACTIONS (5)
  - CELLULITIS [None]
  - DEEP VEIN THROMBOSIS [None]
  - HAEMOGLOBIN DECREASED [None]
  - MALIGNANT NEOPLASM PROGRESSION [None]
  - WHITE BLOOD CELL COUNT DECREASED [None]
